FAERS Safety Report 8198565-X (Version None)
Quarter: 2012Q1

REPORT INFORMATION
  Report Type: 
  Country: None (occurrence: None)
  Receive Date: 20120309
  Receipt Date: 20120306
  Transmission Date: 20120608
  Serious: Yes (Other)
  Sender: FDA-Public Use
  Company Number: PHHY2011BR114701

PATIENT
  Sex: Female

DRUGS (5)
  1. EXFORGE [Suspect]
     Indication: BLOOD PRESSURE
     Dosage: 1 DF(160/5MG) DAILY
     Dates: start: 20111202, end: 20111229
  2. HYDROCHLOROTHIAZIDE [Concomitant]
     Dosage: 25 MG, DAILY
  3. ALPRAZOLAM [Concomitant]
     Dosage: 1 DF, QD, STARTED TWO MONTH AGO
     Route: 048
  4. OMEPRAZOLE [Concomitant]
     Dosage: 1 DF, DAILY
     Route: 048
  5. METOPROLOL SUCCINATE [Concomitant]
     Dosage: 1 DF, AT NIGHT
     Route: 048

REACTIONS (4)
  - WEIGHT INCREASED [None]
  - URINE OUTPUT DECREASED [None]
  - OEDEMA PERIPHERAL [None]
  - GENERALISED OEDEMA [None]
